FAERS Safety Report 14558196 (Version 2)
Quarter: 2019Q2

REPORT INFORMATION
  Report Type: Spontaneous
  Country: AT (occurrence: AT)
  Receive Date: 20180221
  Receipt Date: 20190514
  Transmission Date: 20190711
  Serious: Yes (Hospitalization)
  Sender: FDA-Public Use
  Company Number: PHHY2018AT028407

PATIENT
  Age: 81 Year
  Sex: Female

DRUGS (8)
  1. APREDNISLON [Suspect]
     Active Substance: PREDNISOLONE
     Indication: MYOSITIS
  2. METHOTREXAT [Suspect]
     Active Substance: METHOTREXATE
     Indication: MYOSITIS
     Dosage: 15 MG, QD (15MG/WOCHE)
     Route: 058
     Dates: start: 20000108, end: 201712
  3. METHOTREXAT [Suspect]
     Active Substance: METHOTREXATE
     Indication: RHEUMATOID ARTHRITIS
  4. APREDNISLON [Suspect]
     Active Substance: PREDNISOLONE
     Indication: RHEUMATOID ARTHRITIS
     Dosage: 15 MG, BID
     Route: 048
  5. HUMIRA [Suspect]
     Active Substance: ADALIMUMAB
     Indication: RHEUMATOID ARTHRITIS
     Dosage: 40 MG, UNK
     Route: 058
  6. METOJECT [Concomitant]
     Active Substance: METHOTREXATE SODIUM
     Indication: PRODUCT USED FOR UNKNOWN INDICATION
     Dosage: UNK
     Route: 058
  7. SANDIMMUN [Suspect]
     Active Substance: CYCLOSPORINE
     Indication: RHEUMATOID ARTHRITIS
     Dosage: 50 MG, BID
     Route: 048
  8. SANDIMMUN [Suspect]
     Active Substance: CYCLOSPORINE
     Indication: MYOSITIS

REACTIONS (1)
  - Bartholin^s abscess [Recovered/Resolved]

NARRATIVE: CASE EVENT DATE: 20171206
